FAERS Safety Report 5346204-5 (Version None)
Quarter: 2007Q2

REPORT INFORMATION
  Report Type: 
  Country: None (occurrence: None)
  Receive Date: 20070605
  Receipt Date: 20070604
  Transmission Date: 20071010
  Serious: Yes (Hospitalization)
  Sender: FDA-Public Use
  Company Number: HQWYE488605JUN07

PATIENT
  Age: 36 Year
  Sex: Male
  Weight: 54 kg

DRUGS (4)
  1. TYGACIL [Suspect]
     Indication: SEPSIS
     Dosage: UNKNOWN DOSE EVERY 24 HOURS
     Route: 042
     Dates: start: 20070302, end: 20070308
  2. METAMIZOLE [Concomitant]
     Indication: ANTIPYRESIS
     Dosage: 2.5 TO 7.5 G EVERY 24 HOURS
     Route: 065
  3. ESOMEPRAZOLE MAGNESIUM [Concomitant]
     Dosage: UNKNOWN DOSE AND FREQUENCY
     Route: 065
  4. KETOROLAC TROMETHAMINE [Concomitant]
     Indication: ANALGESIC EFFECT
     Route: 065

REACTIONS (1)
  - THROMBOCYTOPENIC PURPURA [None]
